FAERS Safety Report 7365203-5 (Version None)
Quarter: 2011Q1

REPORT INFORMATION
  Report Type: 
  Country: None (occurrence: None)
  Receive Date: 20110321
  Receipt Date: 20110309
  Transmission Date: 20110831
  Serious: Yes (Other)
  Sender: FDA-Public Use
  Company Number: US-BAYER-2011-022107

PATIENT
  Sex: Female

DRUGS (2)
  1. ADVAIR DISKUS 100/50 [Concomitant]
     Dosage: UNK
     Dates: end: 20110308
  2. AVELOX [Suspect]
     Indication: PNEUMONIA
     Dosage: DAILY DOSE 400 MG
     Route: 048

REACTIONS (1)
  - EYE SWELLING [None]
